FAERS Safety Report 6329905-1 (Version None)
Quarter: 2009Q3

REPORT INFORMATION
  Report Type: 
  Country: None (occurrence: None)
  Receive Date: 20090825
  Receipt Date: 20090813
  Transmission Date: 20100115
  Serious: Yes (Other)
  Sender: FDA-Public Use
  Company Number: ADR15322009

PATIENT
  Age: 68 Year
  Sex: Female

DRUGS (1)
  1. RISPERIDONE [Suspect]
     Dosage: ORAL
     Route: 048
     Dates: start: 20090408

REACTIONS (1)
  - DEEP VEIN THROMBOSIS [None]
